FAERS Safety Report 6453955-8 (Version None)
Quarter: 2009Q4

REPORT INFORMATION
  Report Type: 
  Country: None (occurrence: None)
  Receive Date: 20091124
  Receipt Date: 20091119
  Transmission Date: 20100525
  Serious: Yes (Hospitalization)
  Sender: FDA-Public Use
  Company Number: FR-WYE-G04925809

PATIENT
  Sex: Female

DRUGS (3)
  1. TORISEL [Suspect]
     Indication: HEPATIC CANCER METASTATIC
     Dosage: ONE SINGLE INJECTION OF 25 MG
     Route: 042
     Dates: start: 20090903, end: 20090903
  2. ZOPHREN [Concomitant]
     Indication: PREMEDICATION
     Route: 042
     Dates: start: 20090903, end: 20090903
  3. POLARAMINE [Concomitant]
     Indication: PREMEDICATION
     Route: 042
     Dates: start: 20090903, end: 20090903

REACTIONS (1)
  - ALVEOLITIS ALLERGIC [None]
